FAERS Safety Report 23163195 (Version 4)
Quarter: 2024Q1

REPORT INFORMATION
  Report Type: Spontaneous
  Country: AR (occurrence: AR)
  Receive Date: 20231109
  Receipt Date: 20240108
  Transmission Date: 20240410
  Serious: No
  Sender: FDA-Public Use
  Company Number: AR-PFIZER INC-PV202300177847

PATIENT
  Age: 14 Year
  Sex: Male

DRUGS (2)
  1. GENOTROPIN [Suspect]
     Active Substance: SOMATROPIN
     Indication: Short stature
     Dosage: 1 TO 1.4 MG, 6 TIMES PER WEEK
     Dates: start: 20230817
  2. GENOTROPIN [Suspect]
     Active Substance: SOMATROPIN
     Dosage: 1 TO 1.4 MG, 6 TIMES PER WEEK
     Dates: end: 20231115

REACTIONS (7)
  - Injection site pain [Not Recovered/Not Resolved]
  - Injection site bruising [Unknown]
  - Device mechanical issue [Unknown]
  - Needle issue [Unknown]
  - Product odour abnormal [Unknown]
  - Poor quality product administered [Unknown]
  - Drug dose omission by device [Unknown]
